FAERS Safety Report 6063451-8 (Version None)
Quarter: 2009Q1

REPORT INFORMATION
  Report Type: 
  Country: None (occurrence: None)
  Receive Date: 20090203
  Receipt Date: 20090128
  Transmission Date: 20090719
  Serious: No
  Sender: FDA-Public Use
  Company Number: US-B.I. PHARMACEUTICALS,INC./RIDGEFIELD-2008-BP-19120BP

PATIENT
  Sex: Female

DRUGS (6)
  1. ZANTAC 150 [Suspect]
     Indication: GASTROOESOPHAGEAL REFLUX DISEASE
     Dosage: 150MG
     Route: 048
     Dates: start: 20081222
  2. LABETOLOL [Concomitant]
     Indication: HYPERTENSION
  3. CYMBALTA [Concomitant]
     Indication: DEPRESSION
  4. TRIBUZONE [Concomitant]
  5. TOPAMAX [Concomitant]
  6. NEXIUM [Concomitant]

REACTIONS (1)
  - SWELLING FACE [None]
